FAERS Safety Report 7560680-9 (Version None)
Quarter: 2011Q2

REPORT INFORMATION
  Report Type: 
  Country: None (occurrence: None)
  Receive Date: 20110621
  Receipt Date: 20110614
  Transmission Date: 20111010
  Serious: Yes (Life-Threatening)
  Sender: FDA-Public Use
  Company Number: JP-GENZYME-THYM-1002531

PATIENT
  Sex: Female
  Weight: 50 kg

DRUGS (19)
  1. TACROLIMUS [Concomitant]
     Indication: PROPHYLAXIS AGAINST GRAFT VERSUS HOST DISEASE
     Dosage: UNK
     Dates: start: 20100708, end: 20100825
  2. ACYCLOVIR [Concomitant]
     Dosage: UNK
     Dates: start: 20100720, end: 20100811
  3. URSODIOL [Concomitant]
     Indication: PROPHYLAXIS
     Dosage: UNK
     Dates: start: 20100701
  4. OMEPRAZOLE [Concomitant]
     Indication: PROPHYLAXIS AGAINST GASTROINTESTINAL ULCER
     Dosage: UNK
     Dates: start: 20100701
  5. METHYLPREDNISOLONE SODIUM SUCCINATE [Concomitant]
     Indication: PREMEDICATION
     Dosage: UNK
     Dates: start: 20100706, end: 20100707
  6. FLUDARA [Suspect]
     Indication: ACUTE MYELOID LEUKAEMIA
     Dosage: UNK
     Dates: start: 20100701, end: 20100705
  7. CEFEPIME HYDROCHLORIDE [Concomitant]
     Indication: ACUTE MYELOID LEUKAEMIA
     Dosage: UNK
     Dates: start: 20100701, end: 20100718
  8. LOSARTAN POTASSIUM [Concomitant]
     Indication: HYPERTENSION
     Dosage: UNK
     Dates: start: 20100701
  9. MICAFUNGIN SODIUM [Concomitant]
     Indication: ANTIFUNGAL PROPHYLAXIS
     Dosage: UNK
     Dates: start: 20100720, end: 20100808
  10. FENTANYL-100 [Concomitant]
     Indication: DIARRHOEA
     Dosage: UNK
     Dates: start: 20100720, end: 20100808
  11. FENTANYL-100 [Concomitant]
     Indication: ABDOMINAL PAIN
     Dosage: UNK
  12. MELPHALAN HYDROCHLORIDE [Concomitant]
     Indication: ACUTE MYELOID LEUKAEMIA
     Dosage: UNK
     Dates: start: 20100706, end: 20100707
  13. ACYCLOVIR [Concomitant]
     Indication: PROPHYLAXIS
     Dosage: UNK
     Dates: start: 20100701, end: 20100720
  14. ATENOLOL [Concomitant]
     Indication: HYPERTENSION
     Dosage: UNK
     Dates: start: 20100701
  15. THYMOGLOBULIN [Suspect]
     Indication: BONE MARROW CONDITIONING REGIMEN
     Dosage: 62.5 MG, QD
     Route: 042
     Dates: start: 20100706, end: 20100707
  16. METHOTREXATE [Concomitant]
     Indication: PROPHYLAXIS AGAINST GRAFT VERSUS HOST DISEASE
     Dosage: UNK
     Dates: start: 20100710, end: 20100712
  17. GRANISETRON HCL [Concomitant]
     Indication: PROPHYLAXIS OF NAUSEA AND VOMITING
     Dosage: UNK
     Dates: start: 20100701, end: 20100707
  18. FLUCONAZOLE [Concomitant]
     Indication: ANTIFUNGAL PROPHYLAXIS
     Dosage: UNK
     Dates: start: 20100701, end: 20100719
  19. DILTIAZEM [Concomitant]
     Indication: HYPERTENSION
     Dosage: UNK
     Dates: start: 20100701

REACTIONS (1)
  - FEBRILE NEUTROPENIA [None]
